FAERS Safety Report 18429336 (Version 5)
Quarter: 2021Q3

REPORT INFORMATION
  Report Type: Spontaneous
  Country: US (occurrence: US)
  Receive Date: 20201026
  Receipt Date: 20210929
  Transmission Date: 20211014
  Serious: Yes (Hospitalization, Other)
  Sender: FDA-Public Use
  Company Number: US-PFIZER INC-2020332908

PATIENT
  Age: 70 Year
  Sex: Female

DRUGS (2)
  1. XELJANZ XR [Suspect]
     Active Substance: TOFACITINIB CITRATE
     Indication: RHEUMATOID ARTHRITIS
     Dosage: 11 MG, DAILY
     Route: 048
     Dates: start: 20200804
  2. IBUPROFEN. [Concomitant]
     Active Substance: IBUPROFEN
     Dosage: UNK, AS NEEDED

REACTIONS (9)
  - Coronary artery occlusion [Unknown]
  - Stress [Unknown]
  - Cerebrovascular accident [Unknown]
  - Pain [Unknown]
  - Alopecia [Unknown]
  - Sleep disorder due to a general medical condition [Unknown]
  - Emotional disorder [Unknown]
  - Cognitive disorder [Unknown]
  - Arthralgia [Unknown]
